FAERS Safety Report 9575373 (Version 1)
Quarter: 2013Q4

REPORT INFORMATION
  Report Type: Spontaneous
  Country: US (occurrence: US)
  Receive Date: 20131001
  Receipt Date: 20131001
  Transmission Date: 20140711
  Serious: No
  Sender: FDA-Public Use
  Company Number: US-AMGEN-USASP2013001901

PATIENT
  Age: 54 Year
  Sex: Female
  Weight: 80.27 kg

DRUGS (7)
  1. ENBREL [Suspect]
     Indication: PRODUCT USED FOR UNKNOWN INDICATION
     Dosage: 50 MG, QWK
     Route: 058
  2. SERTRALINE [Concomitant]
     Dosage: 50 MG, UNK
  3. LISINOPRIL [Concomitant]
     Dosage: 10 MG, UNK
  4. LEVOTHYROXIN [Concomitant]
     Dosage: 125 MUG, UNK
  5. VITAMIN D                          /00107901/ [Concomitant]
     Dosage: 2000 UNIT, UNK
  6. MULTIVITAMINS, PLAIN [Concomitant]
     Dosage: UNK
  7. ATORVASTATIN [Concomitant]
     Dosage: 40 MG, UNK

REACTIONS (4)
  - Arthralgia [Unknown]
  - Injection site mass [Unknown]
  - Injection site reaction [Unknown]
  - Injection site pruritus [Unknown]
